FAERS Safety Report 8372963-3 (Version None)
Quarter: 2012Q2

REPORT INFORMATION
  Report Type: 
  Country: None (occurrence: None)
  Receive Date: 20120521
  Receipt Date: 20120224
  Transmission Date: 20120825
  Serious: No
  Sender: FDA-Public Use
  Company Number: US-ASTRAZENECA-2012SE14265

PATIENT

DRUGS (2)
  1. PRILOSEC OTC [Suspect]
     Route: 048
  2. MEXILEN [Concomitant]
     Indication: HYPERTENSION
     Dosage: UNKNOWN

REACTIONS (2)
  - INJURY [None]
  - PAIN IN EXTREMITY [None]
